FAERS Safety Report 15025390 (Version 1)
Quarter: 2018Q2

REPORT INFORMATION
  Report Type: Spontaneous
  Country: US (occurrence: US)
  Receive Date: 20180618
  Receipt Date: 20180618
  Transmission Date: 20180711
  Serious: Yes (Other)
  Sender: FDA-Public Use
  Company Number: US-BAUSCH-BL-2018-016948

PATIENT
  Age: 71 Year
  Sex: Male

DRUGS (10)
  1. AMOXICILLIN/CLAVULANIC ACID [Suspect]
     Active Substance: AMOXICILLIN\CLAVULANIC ACID
     Dosage: AMOXICILLIN 500 MG, CLAVULANIC ACID 125 MG
     Route: 065
     Dates: start: 201403
  2. AMOXICILLIN/CLAVULANIC ACID [Suspect]
     Active Substance: AMOXICILLIN\CLAVULANIC ACID
     Indication: CROHN^S DISEASE
     Dosage: AMOXICILLIN 500 MG, CLAVULANIC ACID 125 MG?EVERY 12 HOURS
     Route: 065
     Dates: start: 2013
  3. AMOXICILLIN/CLAVULANIC ACID [Suspect]
     Active Substance: AMOXICILLIN\CLAVULANIC ACID
     Dosage: AMOXICILLIN 500 MG, CLAVULANIC ACID 125 MG?REPEATED COURSES
     Route: 065
     Dates: start: 201312
  4. METRONIDAZOLE. [Suspect]
     Active Substance: METRONIDAZOLE
     Dosage: EVERY 8 HOURS
     Route: 065
  5. AMOXICILLIN/CLAVULANIC ACID [Suspect]
     Active Substance: AMOXICILLIN\CLAVULANIC ACID
     Indication: BACTERIAL INFECTION
     Dosage: AMOXICILLIN 500 MG, CLAVULANIC ACID 125 MG
     Route: 065
     Dates: start: 201402
  6. METRONIDAZOLE. [Suspect]
     Active Substance: METRONIDAZOLE
     Indication: CROHN^S DISEASE
     Route: 065
     Dates: start: 201403
  7. METRONIDAZOLE. [Suspect]
     Active Substance: METRONIDAZOLE
     Route: 065
     Dates: start: 201402
  8. METRONIDAZOLE. [Suspect]
     Active Substance: METRONIDAZOLE
     Dosage: REPEATED COURSES
     Route: 065
     Dates: start: 201312
  9. METRONIDAZOLE. [Suspect]
     Active Substance: METRONIDAZOLE
     Indication: BACTERIAL INFECTION
     Dosage: AS REQUIRED
     Route: 065
     Dates: start: 2013
  10. AMOXICILLIN/CLAVULANIC ACID [Suspect]
     Active Substance: AMOXICILLIN\CLAVULANIC ACID
     Dosage: AMOXICILLIN 500 MG, CLAVULANIC ACID 125 MG?AS REQUIRED
     Route: 065
     Dates: start: 2013

REACTIONS (1)
  - Gut fermentation syndrome [Unknown]
